FAERS Safety Report 4780701-6 (Version None)
Quarter: 2005Q3

REPORT INFORMATION
  Report Type: 
  Country: None (occurrence: None)
  Receive Date: 20050927
  Receipt Date: 20050915
  Transmission Date: 20060218
  Serious: Yes (Hospitalization, Other)
  Sender: FDA-Public Use
  Company Number: US-MERCK-0509USA02493

PATIENT
  Age: 55 Year
  Sex: Male
  Weight: 105 kg

DRUGS (6)
  1. VIOXX [Suspect]
     Indication: PAIN
     Route: 048
     Dates: start: 20000216, end: 20020901
  2. VIOXX [Suspect]
     Indication: EXOSTOSIS
     Route: 048
     Dates: start: 20000216, end: 20020901
  3. PRILOSEC [Concomitant]
     Route: 065
  4. NEXIUM [Concomitant]
     Route: 065
  5. ACLOVATE [Concomitant]
     Route: 065
  6. LEVITRA [Concomitant]
     Route: 065

REACTIONS (10)
  - ABDOMINAL PAIN [None]
  - ANGIOPATHY [None]
  - BLOOD CHOLESTEROL INCREASED [None]
  - CORONARY ARTERY DISEASE [None]
  - DYSLIPIDAEMIA [None]
  - HYPERTENSION [None]
  - MYOCARDIAL INFARCTION [None]
  - MYOCARDIAL ISCHAEMIA [None]
  - OVERDOSE [None]
  - UPPER LIMB FRACTURE [None]
